FAERS Safety Report 24047399 (Version 2)
Quarter: 2024Q3

REPORT INFORMATION
  Report Type: Spontaneous
  Country: TR (occurrence: None)
  Receive Date: 20240703
  Receipt Date: 20240823
  Transmission Date: 20241017
  Serious: Yes (Hospitalization)
  Sender: ASTRAZENECA
  Company Number: 2024A147839

PATIENT
  Age: 58 Year
  Sex: Male

DRUGS (1)
  1. FASENRA [Suspect]
     Active Substance: BENRALIZUMAB
     Route: 058
     Dates: end: 20240514

REACTIONS (5)
  - Proteinuria [Unknown]
  - Liver function test abnormal [Unknown]
  - Generalised oedema [Unknown]
  - Skin plaque [Unknown]
  - Dermatitis [Unknown]
